FAERS Safety Report 13832567 (Version 1)
Quarter: 2017Q3

REPORT INFORMATION
  Report Type: Spontaneous
  Country: US (occurrence: US)
  Receive Date: 20170803
  Receipt Date: 20170803
  Transmission Date: 20171127
  Serious: No
  Sender: FDA-Public Use
  Company Number: None

PATIENT
  Age: 29 Year
  Sex: Female

DRUGS (1)
  1. ORBACTIV [Suspect]
     Active Substance: ORITAVANCIN
     Indication: SKIN INFECTION
     Dosage: ?          OTHER FREQUENCY:ONE TIME ONLY;?
     Route: 041
     Dates: start: 20170728, end: 20170728

REACTIONS (6)
  - Erythema [None]
  - Infusion related reaction [None]
  - Ocular hyperaemia [None]
  - Feeling hot [None]
  - Urticaria [None]
  - Abnormal sensation in eye [None]

NARRATIVE: CASE EVENT DATE: 20170728
